FAERS Safety Report 11424169 (Version 3)
Quarter: 2015Q3

REPORT INFORMATION
  Report Type: Spontaneous
  Country: BR (occurrence: BR)
  Receive Date: 20150827
  Receipt Date: 20150923
  Transmission Date: 20151125
  Serious: Yes (Hospitalization, Other)
  Sender: FDA-Public Use
  Company Number: ALCN2015BR005290

PATIENT
  Age: 52 Year
  Sex: Male
  Weight: 98 kg

DRUGS (2)
  1. BEROTEC [Concomitant]
     Active Substance: FENOTEROL HYDROBROMIDE
     Indication: ASTHMATIC CRISIS
     Dosage: UNK, UNK
     Route: 065
  2. DUOTRAV BAC-FREE [Suspect]
     Active Substance: TIMOLOL\TRAVOPROST
     Indication: GLAUCOMA
     Dosage: 1 GTT, ONCE/SINGLE
     Route: 047
     Dates: start: 20150819, end: 20150819

REACTIONS (5)
  - Decubitus ulcer [Unknown]
  - Respiratory failure [Recovered/Resolved with Sequelae]
  - Mental disorder [Unknown]
  - Asthma [Recovered/Resolved with Sequelae]
  - Blood pressure increased [Recovered/Resolved with Sequelae]

NARRATIVE: CASE EVENT DATE: 20150819
